FAERS Safety Report 17260741 (Version 8)
Quarter: 2020Q2

REPORT INFORMATION
  Report Type: Spontaneous
  Country: CA (occurrence: CA)
  Receive Date: 20200113
  Receipt Date: 20200426
  Transmission Date: 20200713
  Serious: Yes (Other)
  Sender: FDA-Public Use
  Company Number: CA-CELLTRION INC.-2019CA027919

PATIENT

DRUGS (9)
  1. INFLECTRA [Suspect]
     Active Substance: INFLIXIMAB-DYYB
     Indication: COLITIS ULCERATIVE
     Dosage: 10 MG/KG, AT 0,1 AND 3 WEEKS, THEN EVERY 4 WEEKS
     Route: 042
     Dates: start: 20191205, end: 20200415
  2. INFLECTRA [Suspect]
     Active Substance: INFLIXIMAB-DYYB
     Dosage: 10 MG/KG, AT 0,1 AND 3 WEEKS, THEN EVERY 4 WEEKS
     Route: 042
     Dates: start: 20200317
  3. INFLECTRA [Suspect]
     Active Substance: INFLIXIMAB-DYYB
     Dosage: 10 MG/KG, AT 0,1 AND 3 WEEKS, THEN EVERY 4 WEEKS
     Route: 042
     Dates: start: 20191213
  4. INFLECTRA [Suspect]
     Active Substance: INFLIXIMAB-DYYB
     Dosage: 10 MG/KG, AT 0,1 AND 3 WEEKS, THEN EVERY 4 WEEKS
     Route: 042
     Dates: start: 20200218
  5. PREDNISONE. [Concomitant]
     Active Substance: PREDNISONE
     Dosage: UNK
     Route: 065
  6. INFLECTRA [Suspect]
     Active Substance: INFLIXIMAB-DYYB
     Dosage: 10 MG/KG, AT 0,1 AND 3 WEEKS, THEN EVERY 4 WEEKS
     Route: 042
     Dates: start: 20200218
  7. INFLECTRA [Suspect]
     Active Substance: INFLIXIMAB-DYYB
     Dosage: 10 MG/KG, AT 0,1 AND 3 WEEKS, THEN EVERY 4 WEEKS
     Route: 042
     Dates: start: 20191230
  8. INFLECTRA [Suspect]
     Active Substance: INFLIXIMAB-DYYB
     Dosage: 10 MG/KG, AT 0,1 AND 3 WEEKS, THEN EVERY 4 WEEKS
     Route: 042
     Dates: start: 20200415, end: 20200415
  9. INFLECTRA [Suspect]
     Active Substance: INFLIXIMAB-DYYB
     Dosage: 10 MG/KG, AT 0,1 AND 3 WEEKS, THEN EVERY 4 WEEKS
     Route: 042
     Dates: start: 20200124

REACTIONS (13)
  - Poor venous access [Unknown]
  - Ocular hyperaemia [Unknown]
  - Dizziness postural [Recovered/Resolved]
  - Off label use [Unknown]
  - Weight increased [Unknown]
  - Product use issue [Unknown]
  - Vomiting [Recovering/Resolving]
  - Condition aggravated [Unknown]
  - Intentional product use issue [Unknown]
  - Blood pressure fluctuation [Unknown]
  - Drug ineffective [Unknown]
  - Ecchymosis [Unknown]
  - Diarrhoea [Recovering/Resolving]

NARRATIVE: CASE EVENT DATE: 2019
